FAERS Safety Report 21616516 (Version 2)
Quarter: 2022Q4

REPORT INFORMATION
  Report Type: Spontaneous
  Country: ES (occurrence: ES)
  Receive Date: 20221118
  Receipt Date: 20221202
  Transmission Date: 20230113
  Serious: Yes (Hospitalization, Other)
  Sender: FDA-Public Use
  Company Number: ES-SA-SAC20221117001570

PATIENT
  Sex: Male

DRUGS (1)
  1. LIBTAYO [Suspect]
     Active Substance: CEMIPLIMAB-RWLC
     Indication: Lung adenocarcinoma
     Dosage: 350 MG, Q3W
     Route: 065
     Dates: start: 20220730

REACTIONS (4)
  - Peritonitis [Unknown]
  - Abdominal pain [Unknown]
  - Perforation [Unknown]
  - Diarrhoea [Unknown]
